FAERS Safety Report 5753955-7 (Version None)
Quarter: 2008Q2

REPORT INFORMATION
  Report Type: 
  Country: None (occurrence: None)
  Receive Date: 20080527
  Receipt Date: 20080512
  Transmission Date: 20081010
  Serious: Yes (Disabling, Other)
  Sender: FDA-Public Use
  Company Number: GB-DEXPHARM-20080458

PATIENT
  Age: 43 Year
  Sex: Female

DRUGS (3)
  1. OMEPRAZOLE [Suspect]
     Indication: DYSPEPSIA
     Dosage: 20 MG MILLGRAM(S)
     Route: 048
     Dates: start: 20080115, end: 20080205
  2. MEFENAMIC ACID [Concomitant]
  3. TRANEXAMIC ACID [Concomitant]

REACTIONS (1)
  - EOSINOPHILIA [None]
